FAERS Safety Report 7360929-1 (Version None)
Quarter: 2011Q1

REPORT INFORMATION
  Report Type: 
  Country: None (occurrence: None)
  Receive Date: 20110315
  Receipt Date: 20110315
  Transmission Date: 20110831
  Serious: Yes (Life-Threatening, Hospitalization, Disabling)
  Sender: FDA-Public Use
  Company Number: None

PATIENT
  Age: 90 Year
  Sex: Male
  Weight: 70 kg

DRUGS (2)
  1. PRADAXA [Suspect]
     Indication: ATRIAL FIBRILLATION
     Dosage: 150MG BID PO
     Route: 048
     Dates: start: 20110119, end: 20110219
  2. METOPROLOL TARTRATE [Concomitant]

REACTIONS (6)
  - SUBDURAL HAEMATOMA [None]
  - DIPLOPIA [None]
  - BRAIN MIDLINE SHIFT [None]
  - FALL [None]
  - LETHARGY [None]
  - CONFUSIONAL STATE [None]
